FAERS Safety Report 6636740-3 (Version None)
Quarter: 2010Q1

REPORT INFORMATION
  Report Type: 
  Country: None (occurrence: None)
  Receive Date: 20100226
  Receipt Date: 20090114
  Transmission Date: 20100710
  Serious: Yes (Other)
  Sender: FDA-Public Use
  Company Number: 271212

PATIENT
  Age: 17 Year
  Sex: Male
  Weight: 55.3 kg

DRUGS (3)
  1. NUTROPIN AQ [Suspect]
     Indication: NOONAN SYNDROME
     Dosage: 98, QHS
     Dates: end: 20080505
  2. BACTROBAN [Concomitant]
  3. IBUPROFEN [Concomitant]

REACTIONS (1)
  - SCOLIOSIS [None]
